FAERS Safety Report 7741685-1 (Version None)
Quarter: 2011Q3

REPORT INFORMATION
  Report Type: 
  Country: None (occurrence: None)
  Receive Date: 20110912
  Receipt Date: 20110901
  Transmission Date: 20111222
  Serious: Yes (Hospitalization)
  Sender: FDA-Public Use
  Company Number: US-BIOGENIDEC-2010BI028432

PATIENT
  Age: 64 Year
  Sex: Female
  Weight: 48 kg

DRUGS (2)
  1. LISINOPRIL [Concomitant]
     Indication: HYPERTENSION
  2. TYSABRI [Suspect]
     Indication: MULTIPLE SCLEROSIS
     Route: 042
     Dates: start: 20080623, end: 20101116

REACTIONS (10)
  - INTERVERTEBRAL DISC DEGENERATION [None]
  - GASTROINTESTINAL HAEMORRHAGE [None]
  - DEVICE FAILURE [None]
  - MALAISE [None]
  - VASCULAR OCCLUSION [None]
  - BACK PAIN [None]
  - VITAMIN D DEFICIENCY [None]
  - OSTEOARTHRITIS [None]
  - ASTHENIA [None]
  - HEART RATE IRREGULAR [None]
